FAERS Safety Report 4716880-6 (Version None)
Quarter: 2005Q3

REPORT INFORMATION
  Report Type: 
  Country: None (occurrence: None)
  Receive Date: 20050714
  Receipt Date: 20050516
  Transmission Date: 20060218
  Serious: Yes (Other)
  Sender: FDA-Public Use
  Company Number: 2005BI009783

PATIENT
  Age: 48 Year
  Sex: Female
  Weight: 74.8435 kg

DRUGS (1)
  1. AVONEX [Suspect]
     Indication: MULTIPLE SCLEROSIS
     Dosage: 30 UG; QW; IM
     Route: 030
     Dates: start: 20031001

REACTIONS (7)
  - DRUG HYPERSENSITIVITY [None]
  - HEPATITIS C [None]
  - INFLUENZA LIKE ILLNESS [None]
  - MIGRAINE [None]
  - OEDEMA PERIPHERAL [None]
  - TENDERNESS [None]
  - VOMITING [None]
